FAERS Safety Report 5051816-2 (Version None)
Quarter: 2006Q3

REPORT INFORMATION
  Report Type: 
  Country: None (occurrence: None)
  Receive Date: 20060712
  Receipt Date: 20060712
  Transmission Date: 20061208
  Serious: Yes (Hospitalization)
  Sender: FDA-Public Use
  Company Number: None

PATIENT
  Age: 27 Year
  Sex: Male

DRUGS (2)
  1. SEPTRA DS [Suspect]
     Dosage: 1 TAB BID PO  FEW DAYS
     Route: 048
  2. RIFAMPIN [Suspect]
     Dosage: 600 MG DAILY PO  FEW DAYS
     Route: 048

REACTIONS (2)
  - BURNING SENSATION [None]
  - RASH [None]
